FAERS Safety Report 5605860-4 (Version None)
Quarter: 2008Q1

REPORT INFORMATION
  Report Type: 
  Country: None (occurrence: None)
  Receive Date: 20080129
  Receipt Date: 20080118
  Transmission Date: 20080703
  Serious: Yes (Hospitalization, Other)
  Sender: FDA-Public Use
  Company Number: PHHO2007US19625

PATIENT
  Age: 86 Year
  Sex: Female
  Weight: 58.1 kg

DRUGS (4)
  1. ACLASTA [Suspect]
     Indication: OSTEOPOROSIS POSTMENOPAUSAL
     Dosage: 5 MG
     Route: 042
     Dates: start: 20061116
  2. ALEVE [Concomitant]
  3. LASIX [Concomitant]
  4. ACE INHIBITOR NOS [Concomitant]

REACTIONS (6)
  - ATRIAL FIBRILLATION [None]
  - BUNDLE BRANCH BLOCK LEFT [None]
  - CARDIAC FAILURE CONGESTIVE [None]
  - ISCHAEMIA [None]
  - LEFT VENTRICULAR DYSFUNCTION [None]
  - PULMONARY OEDEMA [None]
